FAERS Safety Report 8983059 (Version 2)
Quarter: 2013Q1

REPORT INFORMATION
  Report Type: Spontaneous
  Country: US (occurrence: US)
  Receive Date: 20121224
  Receipt Date: 20130102
  Transmission Date: 20140127
  Serious: Yes (Other)
  Sender: FDA-Public Use
  Company Number: US-AMGEN-USASP2012082133

PATIENT
  Age: 64 Year
  Sex: Male
  Weight: 96.15 kg

DRUGS (8)
  1. XGEVA [Suspect]
     Indication: PROSTATE CANCER METASTATIC
     Dosage: 120 MG, UNK
     Route: 058
     Dates: start: 20100112, end: 201109
  2. GLIPIZIDE [Concomitant]
     Indication: TYPE 2 DIABETES MELLITUS
     Dosage: 5 MG, UNK
     Route: 048
  3. MEGESTROL [Concomitant]
     Indication: HOT FLUSH
     Dosage: 20 MG, PRN
     Route: 048
  4. METFORMIN [Concomitant]
     Indication: TYPE 2 DIABETES MELLITUS
     Dosage: 100 MG, BID
     Route: 048
  5. PRILOSEC                           /00661201/ [Concomitant]
     Indication: GASTROOESOPHAGEAL REFLUX DISEASE
     Dosage: 20 MG, QD
     Route: 048
  6. TRILIPIX [Concomitant]
     Indication: HYPERLIPIDAEMIA
     Dosage: 135 MG, QHS
  7. VANTAS [Concomitant]
  8. PROVENGE [Concomitant]
     Dosage: UNK
     Dates: start: 20110922

REACTIONS (1)
  - Osteonecrosis of jaw [Recovering/Resolving]
